FAERS Safety Report 22714947 (Version 2)
Quarter: 2024Q3

REPORT INFORMATION
  Report Type: Spontaneous
  Country: FR (occurrence: FR)
  Receive Date: 20230718
  Receipt Date: 20240723
  Transmission Date: 20241016
  Serious: No
  Sender: ALKEM
  Company Number: FR-ALKEM LABORATORIES LIMITED-FR-ALKEM-2022-07712

PATIENT
  Age: 34 Year
  Sex: Male

DRUGS (13)
  1. DRONABINOL [Suspect]
     Active Substance: DRONABINOL
     Indication: Neuralgia
     Dosage: 5 MILLIGRAM, BID (5 MG IN THE MORNING AND IN THE EVENING)
     Route: 048
  2. DRONABINOL [Suspect]
     Active Substance: DRONABINOL
     Dosage: 2.5 MILLIGRAM, QD (IN ONE INTAKE IN THE EVENING)
     Route: 065
  3. DRONABINOL [Suspect]
     Active Substance: DRONABINOL
     Dosage: 2.5 MILLIGRAM, IN EVENING (CAPSULE MOLLE)
     Route: 048
     Dates: start: 20220220
  4. DRONABINOL [Suspect]
     Active Substance: DRONABINOL
     Dosage: 5 MILLIGRAM, BID (IN THE MORNING AND IN THE EVENING) (CAPSULE MOLLE)
     Route: 048
     Dates: start: 20221102
  5. DRONABINOL [Suspect]
     Active Substance: DRONABINOL
     Dosage: 2.5 MILLIGRAM (CAPSULE MOLLE)
     Route: 048
     Dates: end: 20220629
  6. DRONABINOL [Suspect]
     Active Substance: DRONABINOL
     Dosage: 5 MILLIGRAM, BID (IN TWO INTAKES) (CAPSULE MOLLE)
     Route: 048
     Dates: start: 20220814
  7. DRONABINOL [Suspect]
     Active Substance: DRONABINOL
     Dosage: 2.5 MILLIGRAM (CAPSULE MOLLE)
     Route: 065
     Dates: end: 20230419
  8. CYMBALTA [Concomitant]
     Active Substance: DULOXETINE HYDROCHLORIDE
     Indication: Product used for unknown indication
     Dosage: 30 MILLIGRAM, BID (TWICE DAILY, 60 MG)
     Route: 065
  9. AMITRIPTYLINE HYDROCHLORIDE [Concomitant]
     Active Substance: AMITRIPTYLINE HYDROCHLORIDE
     Indication: Product used for unknown indication
     Dosage: 20 DROP ( (1/12 MILLILITRE) / 20 DROPS AT 40 MG/ML)
     Route: 065
  10. BETAHISTINE HYDROCHLORIDE [Concomitant]
     Active Substance: BETAHISTINE HYDROCHLORIDE
     Indication: Product used for unknown indication
     Dosage: 40 MILLIGRAM, (24 MG IN THE MORNING AND 16 MG IN THE EVENING)
     Route: 065
  11. OXETORONE [Concomitant]
     Active Substance: OXETORONE
     Indication: Product used for unknown indication
     Dosage: 60 MILLIGRAM, QD (DAILY DOSE)
     Route: 065
  12. ACETAMINOPHEN [Concomitant]
     Active Substance: ACETAMINOPHEN
     Indication: Product used for unknown indication
     Dosage: 1000 MILLIGRAM, BID (2000 MG)
     Route: 065
  13. TRAMADOL [Concomitant]
     Active Substance: TRAMADOL\TRAMADOL HYDROCHLORIDE
     Indication: Product used for unknown indication
     Dosage: 50 MILLIGRAM, QID (4 TIMES DAILY)
     Route: 065

REACTIONS (6)
  - Disturbance in attention [Not Recovered/Not Resolved]
  - Asthenia [Not Recovered/Not Resolved]
  - Therapeutic response decreased [Unknown]
  - Product prescribing issue [Unknown]
  - Off label use [Unknown]
  - Prescribed underdose [Unknown]

NARRATIVE: CASE EVENT DATE: 20220220
